FAERS Safety Report 5149656-9 (Version None)
Quarter: 2006Q4

REPORT INFORMATION
  Report Type: 
  Country: None (occurrence: None)
  Receive Date: 20061113
  Receipt Date: 20060703
  Transmission Date: 20070319
  Serious: No
  Sender: FDA-Public Use
  Company Number: 2006PV015000

PATIENT
  Age: 61 Year
  Sex: Female
  Weight: 98.6 kg

DRUGS (2)
  1. COREG [Suspect]
     Indication: DRUG USE FOR UNKNOWN INDICATION
     Dosage: 6.25MG PER DAY
     Route: 048
     Dates: start: 20060401
  2. BYETTA [Suspect]
     Dosage: 5MCG TWICE PER DAY
     Route: 058
     Dates: start: 20060527

REACTIONS (3)
  - DIARRHOEA [None]
  - DIZZINESS [None]
  - FATIGUE [None]
